FAERS Safety Report 15577828 (Version 1)
Quarter: 2018Q4

REPORT INFORMATION
  Report Type: Spontaneous
  Country: BR (occurrence: BR)
  Receive Date: 20181102
  Receipt Date: 20181102
  Transmission Date: 20190205
  Serious: Yes (Hospitalization)
  Sender: FDA-Public Use
  Company Number: BR-NAPPMUNDI-GBR-2018-0060987

PATIENT
  Sex: Male

DRUGS (1)
  1. OXYCONTIN [Suspect]
     Active Substance: OXYCODONE HYDROCHLORIDE
     Indication: PAIN IN EXTREMITY
     Dosage: 3 TABLETS, DAILY (STRENGTH 10 MG)
     Route: 048

REACTIONS (4)
  - Infarction [Unknown]
  - Hyperhidrosis [Unknown]
  - Hypotension [Unknown]
  - Vomiting [Unknown]
